FAERS Safety Report 15398596 (Version 4)
Quarter: 2018Q4

REPORT INFORMATION
  Report Type: Report from Study
  Country: TW (occurrence: TW)
  Receive Date: 20180918
  Receipt Date: 20181205
  Transmission Date: 20190204
  Serious: Yes (Hospitalization, Other)
  Sender: FDA-Public Use
  Company Number: TW-TAKEDA-2018TUS027477

PATIENT
  Age: 40 Year
  Sex: Female

DRUGS (5)
  1. VEDOLIZUMAB [Suspect]
     Active Substance: VEDOLIZUMAB
     Indication: CROHN^S DISEASE
     Dosage: 300 MG, UNK
     Route: 042
     Dates: start: 20180718, end: 20181127
  2. SULFASALAZINE. [Concomitant]
     Active Substance: SULFASALAZINE
     Dosage: UNK
     Dates: start: 20170306
  3. BROSYM [Suspect]
     Active Substance: CEFOPERAZONE SODIUM\SULBACTAM SODIUM
     Indication: PRODUCT USED FOR UNKNOWN INDICATION
     Dosage: UNK
     Route: 065
  4. PREDNISOLONE. [Concomitant]
     Active Substance: PREDNISOLONE
     Dosage: UNK
     Dates: start: 20170306
  5. AZATHIOPRINE. [Concomitant]
     Active Substance: AZATHIOPRINE
     Dosage: UNK
     Dates: start: 20170613, end: 20180929

REACTIONS (13)
  - Salmonellosis [Unknown]
  - Cytomegalovirus infection [Unknown]
  - Abdominal pain [Recovering/Resolving]
  - Sepsis [Unknown]
  - Pyrexia [Unknown]
  - C-reactive protein increased [Unknown]
  - Myalgia [Unknown]
  - Crohn^s disease [Unknown]
  - Proctitis [Unknown]
  - Headache [Unknown]
  - Hordeolum [Unknown]
  - Arthralgia [Unknown]
  - Rash generalised [Unknown]

NARRATIVE: CASE EVENT DATE: 20180901
